FAERS Safety Report 7585327-7 (Version None)
Quarter: 2011Q2

REPORT INFORMATION
  Report Type: 
  Country: None (occurrence: None)
  Receive Date: 20110628
  Receipt Date: 20110628
  Transmission Date: 20111010
  Serious: No
  Sender: FDA-Public Use
  Company Number: None

PATIENT
  Sex: Female

DRUGS (1)
  1. REBIF [Suspect]
     Indication: MULTIPLE SCLEROSIS
     Dosage: 44MCG THREE TIMES/WEEK SUBCUTANEOUSLY
     Route: 058
     Dates: start: 20110604, end: 20110610

REACTIONS (5)
  - INJECTION SITE PRURITUS [None]
  - INJECTION SITE ERYTHEMA [None]
  - UNEVALUABLE EVENT [None]
  - INJECTION SITE URTICARIA [None]
  - PRURITUS GENERALISED [None]
